FAERS Safety Report 10410250 (Version 2)
Quarter: 2014Q3

REPORT INFORMATION
  Report Type: Spontaneous
  Country: US (occurrence: US)
  Receive Date: 20140826
  Receipt Date: 20140826
  Transmission Date: 20150326
  Serious: Yes (Hospitalization, Other)
  Sender: FDA-Public Use
  Company Number: US-009507513-2010SP031284

PATIENT
  Sex: Female
  Weight: 79.38 kg

DRUGS (3)
  1. NUVARING [Suspect]
     Active Substance: ETHINYL ESTRADIOL\ETONOGESTREL
     Indication: ANALGESIC THERAPY
  2. NUVARING [Suspect]
     Active Substance: ETHINYL ESTRADIOL\ETONOGESTREL
     Indication: CONTRACEPTION
     Route: 067
     Dates: start: 20080528, end: 200806
  3. LUPRON [Concomitant]
     Active Substance: LEUPROLIDE ACETATE
     Indication: ENDOMETRIOSIS
     Dates: start: 200801, end: 200807

REACTIONS (25)
  - Respiratory failure [Unknown]
  - Chest pain [Not Recovered/Not Resolved]
  - Depression [Unknown]
  - Liver function test abnormal [Unknown]
  - Epistaxis [Unknown]
  - Lung disorder [Unknown]
  - Convulsion [Unknown]
  - Dyspnoea [Not Recovered/Not Resolved]
  - Pneumonia [Unknown]
  - Incorrect drug administration duration [Recovered/Resolved]
  - Nausea [Unknown]
  - Insomnia [Unknown]
  - Post-traumatic stress disorder [Unknown]
  - Fibromyalgia [Unknown]
  - Deep vein thrombosis [Recovered/Resolved]
  - Off label use [Unknown]
  - Chest pain [Unknown]
  - Chronic obstructive pulmonary disease [Not Recovered/Not Resolved]
  - Pulmonary infarction [Unknown]
  - Musculoskeletal chest pain [Unknown]
  - Pulmonary embolism [Recovering/Resolving]
  - Abdominal discomfort [Unknown]
  - Anaemia [Recovering/Resolving]
  - Transient ischaemic attack [Unknown]
  - Anxiety [Unknown]

NARRATIVE: CASE EVENT DATE: 200805
